FAERS Safety Report 22266651 (Version 1)
Quarter: 2023Q2

REPORT INFORMATION
  Report Type: Spontaneous
  Country: BR (occurrence: BR)
  Receive Date: 20230428
  Receipt Date: 20230428
  Transmission Date: 20230722
  Serious: Yes (Other)
  Sender: FDA-Public Use
  Company Number: BR-002147023-NVSC2023BR033510

PATIENT
  Age: 47 Year
  Sex: Male

DRUGS (1)
  1. SECUKINUMAB [Suspect]
     Active Substance: SECUKINUMAB
     Indication: Pityriasis rubra pilaris
     Dosage: UNK
     Route: 065

REACTIONS (4)
  - Pityriasis rubra pilaris [Unknown]
  - Disease progression [Unknown]
  - Therapy non-responder [Unknown]
  - Product use in unapproved indication [Unknown]
